FAERS Safety Report 19437171 (Version 1)
Quarter: 2021Q2

REPORT INFORMATION
  Report Type: Spontaneous
  Country: US (occurrence: US)
  Receive Date: 20210618
  Receipt Date: 20210618
  Transmission Date: 20210717
  Serious: Yes (Other)
  Sender: FDA-Public Use
  Company Number: US-JNJFOC-20210631639

PATIENT
  Age: 47 Year
  Sex: Female

DRUGS (10)
  1. TOPAMAX [Suspect]
     Active Substance: TOPIRAMATE
     Indication: BALANCE DISORDER
  2. BACLOFEN. [Concomitant]
     Active Substance: BACLOFEN
  3. ZYRTEC [Concomitant]
     Active Substance: CETIRIZINE HYDROCHLORIDE
  4. VITAMIN D3 [Concomitant]
     Active Substance: CHOLECALCIFEROL
  5. TOPAMAX [Suspect]
     Active Substance: TOPIRAMATE
     Indication: HEADACHE
     Route: 048
     Dates: start: 20201218
  6. TOPAMAX [Suspect]
     Active Substance: TOPIRAMATE
     Indication: DIZZINESS
  7. OCRELIZUMAB. [Concomitant]
     Active Substance: OCRELIZUMAB
  8. TOPAMAX [Suspect]
     Active Substance: TOPIRAMATE
     Indication: FATIGUE
  9. TOPAMAX [Suspect]
     Active Substance: TOPIRAMATE
     Indication: INSOMNIA
  10. TYLENOL [Concomitant]
     Active Substance: ACETAMINOPHEN

REACTIONS (1)
  - Multiple sclerosis [Recovered/Resolved]

NARRATIVE: CASE EVENT DATE: 20210103
